FAERS Safety Report 16050005 (Version 1)
Quarter: 2019Q1

REPORT INFORMATION
  Report Type: Spontaneous
  Country: FR (occurrence: FR)
  Receive Date: 20190308
  Receipt Date: 20190308
  Transmission Date: 20190418
  Serious: Yes (Hospitalization)
  Sender: FDA-Public Use
  Company Number: FR-ACCORD-111009

PATIENT
  Age: 63 Year
  Sex: Male
  Weight: 100 kg

DRUGS (3)
  1. OXALIPLATINE ACCORD [Suspect]
     Active Substance: OXALIPLATIN
     Indication: PROSTATE CANCER
     Route: 042
     Dates: start: 20180621, end: 20180814
  2. IRINOTECAN MEDAC [Suspect]
     Active Substance: IRINOTECAN
     Indication: PROSTATE CANCER
     Route: 042
     Dates: start: 20180621, end: 20180814
  3. FLUOROURACILE ACCORD [Suspect]
     Active Substance: FLUOROURACIL
     Indication: PROSTATE CANCER
     Route: 042
     Dates: start: 20180621, end: 20180814

REACTIONS (4)
  - Off label use [Unknown]
  - Paraesthesia [Recovered/Resolved]
  - UGT1A1 gene polymorphism [Not Recovered/Not Resolved]
  - Diarrhoea [Recovered/Resolved]

NARRATIVE: CASE EVENT DATE: 20180621
